FAERS Safety Report 6420008-4 (Version None)
Quarter: 2009Q4

REPORT INFORMATION
  Report Type: 
  Country: None (occurrence: None)
  Receive Date: 20091029
  Receipt Date: 20091023
  Transmission Date: 20100525
  Serious: Yes (Hospitalization)
  Sender: FDA-Public Use
  Company Number: US-TEVA-213279USA

PATIENT
  Sex: Male

DRUGS (2)
  1. URSODIOL [Suspect]
     Route: 048
     Dates: start: 20090903
  2. WARFARIN SODIUM [Interacting]

REACTIONS (4)
  - DRUG INTERACTION [None]
  - INTERNATIONAL NORMALISED RATIO INCREASED [None]
  - LUNG INFILTRATION [None]
  - SEPSIS [None]
